FAERS Safety Report 8825310 (Version 2)
Quarter: 2012Q4

REPORT INFORMATION
  Report Type: 
  Country: US (occurrence: US)
  Receive Date: 20121004
  Receipt Date: 20121015
  Transmission Date: 20130627
  Serious: Yes (Hospitalization)
  Sender: FDA-Public Use
  Company Number: US-ABBOTT-12P-163-0990488-00

PATIENT
  Age: 50 None
  Sex: Male
  Weight: 81.72 kg

DRUGS (3)
  1. ANDROGEL 1% [Suspect]
     Indication: BLOOD TESTOSTERONE DECREASED
     Dosage: Apply two 5gm packets daily
     Route: 062
     Dates: start: 2007
  2. VITAMINS NOS [Concomitant]
     Indication: PRODUCT USED FOR UNKNOWN INDICATION
  3. XANAX [Concomitant]
     Indication: PRODUCT USED FOR UNKNOWN INDICATION

REACTIONS (10)
  - Road traffic accident [Recovered/Resolved]
  - Urethral injury [Recovered/Resolved]
  - Bladder injury [Recovered/Resolved]
  - Hip fracture [Recovering/Resolving]
  - Femur fracture [Recovering/Resolving]
  - Tibia fracture [Recovering/Resolving]
  - Fibula fracture [Recovering/Resolving]
  - Joint injury [Recovering/Resolving]
  - Foot fracture [Recovering/Resolving]
  - Alopecia [Not Recovered/Not Resolved]
